FAERS Safety Report 6114109-8 (Version None)
Quarter: 2009Q1

REPORT INFORMATION
  Report Type: 
  Country: None (occurrence: None)
  Receive Date: 20090312
  Receipt Date: 20080310
  Transmission Date: 20090719
  Serious: No
  Sender: FDA-Public Use
  Company Number: US-ABBOTT-08P-163-0441787-00

PATIENT
  Sex: Male
  Weight: 61 kg

DRUGS (5)
  1. DEPAKOTE [Suspect]
     Indication: CONVULSION
     Route: 048
     Dates: end: 20070501
  2. DEPAKOTE [Suspect]
     Route: 048
     Dates: start: 20070501
  3. OMEPRAZOLE [Concomitant]
     Indication: GASTROOESOPHAGEAL REFLUX DISEASE
     Dosage: NOT REPORTED
  4. ASPIRIN [Concomitant]
     Indication: CEREBROVASCULAR ACCIDENT PROPHYLAXIS
     Dosage: NOT REPORTED
  5. LORAZEPAM [Concomitant]
     Indication: AGGRESSION
     Dosage: NOT REPORTED

REACTIONS (1)
  - CONVULSION [None]
